FAERS Safety Report 20050970 (Version 6)
Quarter: 2022Q1

REPORT INFORMATION
  Report Type: Spontaneous
  Country: BR (occurrence: BR)
  Receive Date: 20211110
  Receipt Date: 20220112
  Transmission Date: 20220424
  Serious: Yes (Disabling, Other)
  Sender: FDA-Public Use
  Company Number: BR-CELLTRION INC.-2021BR014644

PATIENT

DRUGS (6)
  1. INFLIXIMAB [Suspect]
     Active Substance: INFLIXIMAB
     Indication: Psoriasis
     Dosage: 5 AMPOULES EACH 60 DAYS
     Dates: start: 20210826
  2. INFLIXIMAB [Suspect]
     Active Substance: INFLIXIMAB
     Dosage: FIRST REMSIMA INFUSION; 5 AMPOULES EACH 8 WEEKS
     Dates: start: 20210826
  3. INFLIXIMAB [Suspect]
     Active Substance: INFLIXIMAB
     Dosage: SECOND INFUSION AFTER THE FIRST, 5 AMPOULES EACH 8 WEEKS
     Dates: start: 20211026
  4. INFLIXIMAB [Suspect]
     Active Substance: INFLIXIMAB
     Dosage: 5 AMPOULES DILUTED IN 100ML OF SERUM
  5. CYCLOSPORINE [Concomitant]
     Active Substance: CYCLOSPORINE
     Indication: Psoriasis
     Dosage: 100 MG 3 TIMES PER DAY, (DATE OF ADMINISTRATION: ^START:8 YEARS^)
     Route: 048
  6. LOSARTAN [Concomitant]
     Active Substance: LOSARTAN
     Indication: Hypertension
     Dosage: 1 TABLET AT NIGHT (DATE OF ADMINISTRATION: START: ^5 YEARS^)
     Route: 048

REACTIONS (20)
  - Bedridden [Recovered/Resolved]
  - Loss of personal independence in daily activities [Unknown]
  - Chills [Not Recovered/Not Resolved]
  - Skin disorder [Recovering/Resolving]
  - Skin exfoliation [Not Recovered/Not Resolved]
  - Swelling [Recovered/Resolved]
  - Wound [Not Recovered/Not Resolved]
  - Condition aggravated [Unknown]
  - Dysstasia [Unknown]
  - Tremor [Unknown]
  - Skin erosion [Unknown]
  - Peripheral swelling [Recovering/Resolving]
  - Arthralgia [Not Recovered/Not Resolved]
  - Dry skin [Unknown]
  - Joint swelling [Unknown]
  - Fatigue [Unknown]
  - Pyrexia [Recovered/Resolved]
  - Skin discolouration [Recovered/Resolved]
  - Therapeutic response decreased [Not Recovered/Not Resolved]
  - Off label use [Unknown]

NARRATIVE: CASE EVENT DATE: 20211004
